FAERS Safety Report 9836556 (Version 3)
Quarter: 2014Q1

REPORT INFORMATION
  Report Type: Spontaneous
  Country: DE (occurrence: DE)
  Receive Date: 20140123
  Receipt Date: 20140314
  Transmission Date: 20141002
  Serious: Yes (Hospitalization, Other)
  Sender: FDA-Public Use
  Company Number: DE-AMGEN-DEUSP2014004369

PATIENT
  Age: 63 Year
  Sex: Female
  Weight: 63 kg

DRUGS (3)
  1. ENBREL [Suspect]
     Indication: RHEUMATOID ARTHRITIS
     Dosage: 50 MG, WEEKLY
     Route: 058
     Dates: start: 201207
  2. VITAMIN D3 [Concomitant]
     Dosage: 1000 IU, 1X/DAY
     Route: 048
     Dates: start: 20110706
  3. PREDNISOLON                        /00016201/ [Concomitant]
     Dosage: 10 MG, 1X/DAY
     Route: 048

REACTIONS (1)
  - Sarcoidosis [Unknown]
